FAERS Safety Report 9729987 (Version 1)
Quarter: 2013Q4

REPORT INFORMATION
  Report Type: Spontaneous
  Country: FR (occurrence: FR)
  Receive Date: 20131204
  Receipt Date: 20131204
  Transmission Date: 20140711
  Serious: Yes (Life-Threatening, Hospitalization)
  Sender: FDA-Public Use
  Company Number: FR-CELGENEUS-056-21880-13114067

PATIENT
  Age: 68 Year
  Sex: Male
  Weight: 96 kg

DRUGS (2)
  1. REVLIMID [Suspect]
     Indication: PLASMA CELL MYELOMA
     Dosage: 10 MILLIGRAM
     Route: 048
     Dates: start: 200812, end: 20131109
  2. CORTICOSTEROIDS [Suspect]
     Indication: PLASMA CELL MYELOMA
     Route: 065
     Dates: start: 200812

REACTIONS (1)
  - Acute lymphocytic leukaemia [Not Recovered/Not Resolved]
